FAERS Safety Report 12144217 (Version 2)
Quarter: 2016Q1

REPORT INFORMATION
  Report Type: Report from Study
  Country: BE (occurrence: BE)
  Receive Date: 20160304
  Receipt Date: 20160311
  Transmission Date: 20160526
  Serious: Yes (Hospitalization)
  Sender: FDA-Public Use
  Company Number: BE-009507513-1603BEL000599

PATIENT
  Age: 34 Year
  Sex: Female

DRUGS (5)
  1. IBRUFEN [Concomitant]
     Indication: PAIN
     Dosage: 600 MG, BID
     Route: 048
  2. ZALDIAR [Concomitant]
     Active Substance: ACETAMINOPHEN\TRAMADOL HYDROCHLORIDE
     Indication: PAIN
     Dosage: SIX TIMES A DAY
     Route: 048
  3. PANTOMED (DEXPANTHENOL) [Concomitant]
     Indication: PROPHYLAXIS
     Dosage: 20 MG, ONCE
     Route: 048
  4. VALPROATE SODIUM. [Concomitant]
     Active Substance: VALPROATE SODIUM
     Indication: EPILEPSY
     Dosage: 500 MG, BID
     Route: 048
     Dates: start: 20151103
  5. PEMBROLIZUMAB. [Suspect]
     Active Substance: PEMBROLIZUMAB
     Indication: MALIGNANT MELANOMA STAGE IV
     Dosage: TOTAL DALIY DOSE 114 MG; STRENGTH:114 MG
     Route: 042
     Dates: start: 20160118, end: 2016

REACTIONS (2)
  - Sepsis [Recovering/Resolving]
  - Ischaemic hepatitis [Unknown]

NARRATIVE: CASE EVENT DATE: 20160128
